APPROVED DRUG PRODUCT: CEFTRIAXONE
Active Ingredient: CEFTRIAXONE SODIUM
Strength: EQ 2GM BASE/VIAL
Dosage Form/Route: INJECTABLE;INJECTION
Application: A065204 | Product #002 | TE Code: AP
Applicant: SANDOZ INC
Approved: May 3, 2005 | RLD: No | RS: Yes | Type: RX